FAERS Safety Report 7383508-9 (Version None)
Quarter: 2011Q1

REPORT INFORMATION
  Report Type: 
  Country: None (occurrence: None)
  Receive Date: 20110330
  Receipt Date: 20110317
  Transmission Date: 20110831
  Serious: Yes (Hospitalization)
  Sender: FDA-Public Use
  Company Number: CA-BAYER-2011-024186

PATIENT
  Age: 64 Year
  Sex: Male
  Weight: 90 kg

DRUGS (3)
  1. ADVAIR DISKUS 100/50 [Suspect]
  2. CIPRO [Suspect]
     Indication: PRODUCT USED FOR UNKNOWN INDICATION
  3. REMICADE [Suspect]
     Dosage: 500 MG, UNK
     Route: 042

REACTIONS (4)
  - INFLUENZA LIKE ILLNESS [None]
  - HYPERSENSITIVITY [None]
  - PNEUMONIA [None]
  - ORAL HERPES [None]
